FAERS Safety Report 9821992 (Version 3)
Quarter: 2014Q1

REPORT INFORMATION
  Report Type: Report from Study
  Country: US (occurrence: US)
  Receive Date: 20140116
  Receipt Date: 20140203
  Transmission Date: 20141002
  Serious: Yes (Other)
  Sender: FDA-Public Use
  Company Number: US-BAYER-2013-156700

PATIENT
  Age: 58 Year
  Sex: Male

DRUGS (5)
  1. STIVARGA [Suspect]
     Indication: COLON CANCER
     Dosage: 120 MG, QD
     Route: 048
     Dates: start: 20131220, end: 20131223
  2. STIVARGA [Suspect]
     Indication: COLON CANCER
     Dosage: 80 MG, QD
     Route: 048
     Dates: start: 20140103, end: 20140124
  3. ATIVAN [Concomitant]
     Dosage: UNK
     Dates: start: 20140104
  4. AMBIEN [Concomitant]
     Dosage: 12.5 MG
  5. AMBIEN [Concomitant]
     Dosage: 1-2 TABLETS EVERY NIGHT

REACTIONS (14)
  - Gastritis [Not Recovered/Not Resolved]
  - Weight decreased [Not Recovered/Not Resolved]
  - Nausea [Not Recovered/Not Resolved]
  - Decreased appetite [Not Recovered/Not Resolved]
  - Fatigue [Not Recovered/Not Resolved]
  - Chest pain [Not Recovered/Not Resolved]
  - Blood pressure increased [Recovered/Resolved]
  - Hypertension [Recovered/Resolved]
  - Heart rate increased [Recovered/Resolved]
  - Dysphonia [Not Recovered/Not Resolved]
  - Dehydration [Recovered/Resolved]
  - Sluggishness [None]
  - Drug tolerance [None]
  - Hepatic enzyme increased [Not Recovered/Not Resolved]
